FAERS Safety Report 7567952-2 (Version None)
Quarter: 2011Q2

REPORT INFORMATION
  Report Type: 
  Country: None (occurrence: None)
  Receive Date: 20110623
  Receipt Date: 20110617
  Transmission Date: 20111010
  Serious: Yes (Other)
  Sender: FDA-Public Use
  Company Number: US-BRISTOL-MYERS SQUIBB COMPANY-15841661

PATIENT
  Age: 45 Year
  Sex: Male
  Weight: 161 kg

DRUGS (7)
  1. HYDROCHLOROTHIAZIDE [Concomitant]
  2. ASPIRIN [Concomitant]
  3. SIMVASTATIN [Concomitant]
  4. KOMBIGLYZE XR [Suspect]
     Dates: start: 20110101
  5. METFORMIN HCL [Concomitant]
  6. MULTI-VITAMINS [Concomitant]
  7. GLIPIZIDE [Concomitant]

REACTIONS (1)
  - ERYTHEMA MULTIFORME [None]
